FAERS Safety Report 8863259 (Version 1)
Quarter: 2012Q4

REPORT INFORMATION
  Report Type: 
  Country: US (occurrence: US)
  Receive Date: 20121025
  Receipt Date: 20121025
  Transmission Date: 20130627
  Serious: No
  Sender: FDA-Public Use
  Company Number: US-009507513-1210USA007978

PATIENT
  Sex: Female

DRUGS (2)
  1. SINGULAIR [Suspect]
     Indication: ASTHMA
     Dosage: UNK
     Route: 048
     Dates: start: 201208, end: 2012
  2. DIOVAN [Concomitant]

REACTIONS (3)
  - Nightmare [Recovering/Resolving]
  - Somnolence [Recovering/Resolving]
  - Paraesthesia [Recovering/Resolving]
